FAERS Safety Report 12633411 (Version 1)
Quarter: 2016Q3

REPORT INFORMATION
  Report Type: Spontaneous
  Country: DE (occurrence: None)
  Receive Date: 20160808
  Receipt Date: 20160808
  Transmission Date: 20161109
  Serious: Yes (Other)
  Sender: FDA-Public Use
  Company Number: None

PATIENT
  Age: 31 Year
  Sex: Male
  Weight: 62 kg

DRUGS (1)
  1. FINAPRIL (FINASTERIDE), 1 MG DERMPAHARM AG [Suspect]
     Active Substance: FINASTERIDE
     Indication: ANDROGENETIC ALOPECIA
     Dosage: 1 TABLET(S) IN THE MORNING TAKEN BY MOUTH
     Route: 048
     Dates: start: 20131218, end: 20150725

REACTIONS (10)
  - Therapy cessation [None]
  - Erectile dysfunction [None]
  - Loss of libido [None]
  - Poor quality sleep [None]
  - Sperm concentration decreased [None]
  - Dizziness [None]
  - Fatigue [None]
  - Balance disorder [None]
  - Middle insomnia [None]
  - Asthenia [None]

NARRATIVE: CASE EVENT DATE: 20160311
